FAERS Safety Report 4804207-0 (Version None)
Quarter: 2005Q4

REPORT INFORMATION
  Report Type: 
  Country: None (occurrence: None)
  Receive Date: 20051017
  Receipt Date: 20050930
  Transmission Date: 20060501
  Serious: Yes (Other)
  Sender: FDA-Public Use
  Company Number: 2005RR-00882

PATIENT
  Age: 13 Year
  Sex: Female

DRUGS (3)
  1. FLUOXETINE [Suspect]
     Indication: DEPRESSION
     Dosage: 20 MG, ORAL
     Route: 048
     Dates: start: 20050809, end: 20050904
  2. BECOTIDE [Concomitant]
  3. SALBUTAMOL TABLETS BP 2MG (SALBUTAMOL) [Concomitant]

REACTIONS (4)
  - ABDOMINAL DISTENSION [None]
  - SWELLING FACE [None]
  - THIRST [None]
  - URINE OUTPUT DECREASED [None]
